FAERS Safety Report 18328976 (Version 1)
Quarter: 2020Q3

REPORT INFORMATION
  Report Type: Spontaneous
  Country: US (occurrence: US)
  Receive Date: 20200929
  Receipt Date: 20200929
  Transmission Date: 20201103
  Serious: Yes (Other)
  Sender: FDA-Public Use
  Company Number: None

PATIENT
  Age: 64 Year
  Sex: Male
  Weight: 82.1 kg

DRUGS (2)
  1. VYTORIN [Suspect]
     Active Substance: EZETIMIBE\SIMVASTATIN
     Indication: BLOOD CHOLESTEROL
     Dosage: ?          OTHER DOSE:10?80 MG;?
     Route: 048
     Dates: start: 20161114, end: 20161214
  2. LIPITOR [Suspect]
     Active Substance: ATORVASTATIN CALCIUM
     Indication: BLOOD CHOLESTEROL
     Route: 048
     Dates: start: 20161014, end: 20161114

REACTIONS (3)
  - Myalgia [None]
  - Arthralgia [None]
  - Musculoskeletal discomfort [None]

NARRATIVE: CASE EVENT DATE: 20161014
